FAERS Safety Report 21856084 (Version 2)
Quarter: 2023Q1

REPORT INFORMATION
  Report Type: Report from Study
  Country: CZ (occurrence: None)
  Receive Date: 20230112
  Receipt Date: 20230124
  Transmission Date: 20230418
  Serious: Yes (Hospitalization)
  Sender: FDA-Public Use
  Company Number: CZ-ROCHE-3256753

PATIENT
  Age: 72 Year
  Sex: Male
  Weight: 90 kg

DRUGS (17)
  1. GLOFITAMAB [Suspect]
     Active Substance: GLOFITAMAB
     Indication: B-cell lymphoma
     Dosage: START/END DATE OF MOST RECENT DOSE OF STUDY DRUG?PRIOR TO SAE, PRIOR TO SAE?20-DEC-2022.  DOSE LAST
     Route: 042
     Dates: start: 20220510
  2. OBINUTUZUMAB [Suspect]
     Active Substance: OBINUTUZUMAB
     Indication: B-cell lymphoma
     Dosage: START DATE OF MOST RECENT DOSE OF STUDY DRUG?PRIOR TO SAE 03-MAY-2022, 1000MG
     Route: 042
     Dates: start: 20220503
  3. TOCILIZUMAB [Suspect]
     Active Substance: TOCILIZUMAB
     Indication: B-cell lymphoma
     Dosage: DOSE LAST STUDY DRUG ADMIN PRIOR SAE 720MG
     Route: 042
     Dates: start: 20220525
  4. GLICLAZIDE [Concomitant]
     Active Substance: GLICLAZIDE
     Indication: Diabetes mellitus
     Dates: start: 2000
  5. AUGMENTIN [Concomitant]
     Active Substance: AMOXICILLIN\CLAVULANATE POTASSIUM
     Indication: COVID-19
     Route: 048
     Dates: start: 20221004
  6. CIPROFLOXACIN HYDROCHLORIDE [Concomitant]
     Active Substance: CIPROFLOXACIN HYDROCHLORIDE
     Indication: COVID-19
     Route: 048
     Dates: start: 20221004
  7. DEXAMETHASONE [Concomitant]
     Active Substance: DEXAMETHASONE
     Dates: start: 20221220, end: 20221220
  8. BISULEPIN [Concomitant]
     Active Substance: BISULEPIN
     Dosage: 1 AMPULE
     Dates: start: 20221220, end: 20221220
  9. ACETAMINOPHEN [Concomitant]
     Active Substance: ACETAMINOPHEN
     Dates: start: 20221220, end: 20221220
  10. TELMISARTAN [Concomitant]
     Active Substance: TELMISARTAN
     Indication: Hypertension
     Dates: start: 2000
  11. BISOPROLOL [Concomitant]
     Active Substance: BISOPROLOL
     Indication: Hypertension
     Dates: start: 200012
  12. JARDIANCE [Concomitant]
     Active Substance: EMPAGLIFLOZIN
     Indication: Diabetes mellitus
     Dates: start: 2000
  13. GLUCOPHAGE [Concomitant]
     Active Substance: METFORMIN HYDROCHLORIDE
     Indication: Diabetes mellitus
     Dates: start: 2000
  14. TRESIBA [Concomitant]
     Active Substance: INSULIN DEGLUDEC
     Indication: Diabetes mellitus
     Dates: start: 2001
  15. ZOVIRAX [Concomitant]
     Active Substance: ACYCLOVIR
     Dates: start: 20220602
  16. ASPIRIN\GLYCINE [Concomitant]
     Active Substance: ASPIRIN\GLYCINE
     Dates: start: 20220719
  17. ALLOPURINOL [Concomitant]
     Active Substance: ALLOPURINOL
     Dates: start: 20220719

REACTIONS (1)
  - Pneumonia [Unknown]

NARRATIVE: CASE EVENT DATE: 20230102
